FAERS Safety Report 10168133 (Version 1)
Quarter: 2014Q2

REPORT INFORMATION
  Report Type: Spontaneous
  Country: IT (occurrence: IT)
  Receive Date: 20140512
  Receipt Date: 20140512
  Transmission Date: 20141212
  Serious: Yes (Hospitalization, Other)
  Sender: FDA-Public Use
  Company Number: IT-ELI_LILLY_AND_COMPANY-IT201405000696

PATIENT
  Age: 41 Year
  Sex: Male

DRUGS (2)
  1. HUMALOG LISPRO [Suspect]
     Indication: INTENTIONAL SELF-INJURY
     Dosage: 100 IU, UNK
     Route: 058
     Dates: start: 20140409, end: 20140409
  2. XANAX [Concomitant]

REACTIONS (3)
  - Intentional self-injury [Unknown]
  - Hypoglycaemic coma [Unknown]
  - Drug abuse [Unknown]
